FAERS Safety Report 18540696 (Version 1)
Quarter: 2020Q4

REPORT INFORMATION
  Report Type: Report from Study
  Country: None (occurrence: US)
  Receive Date: 20201124
  Receipt Date: 20201124
  Transmission Date: 20210114
  Serious: Yes (Hospitalization, Other)
  Sender: FDA-Public Use
  Company Number: US-ABBVIE-20K-163-3659480-00

PATIENT
  Age: 66 Year
  Sex: Male

DRUGS (1)
  1. HUMIRA [Suspect]
     Active Substance: ADALIMUMAB
     Indication: RHEUMATOID ARTHRITIS
     Dosage: CITRATE FREE
     Route: 058
     Dates: start: 20200630, end: 20201011

REACTIONS (3)
  - Post procedural complication [Recovering/Resolving]
  - Thrombosis [Recovering/Resolving]
  - Spinal fusion surgery [Unknown]

NARRATIVE: CASE EVENT DATE: 20201026
